FAERS Safety Report 14624687 (Version 1)
Quarter: 2018Q1

REPORT INFORMATION
  Report Type: Spontaneous
  Country: US (occurrence: US)
  Receive Date: 20180312
  Receipt Date: 20180312
  Transmission Date: 20180509
  Serious: No
  Sender: FDA-Public Use
  Company Number: US-PFIZER INC-2018093157

PATIENT
  Age: 62 Year
  Sex: Male
  Weight: 80.27 kg

DRUGS (7)
  1. AMBIEN [Concomitant]
     Active Substance: ZOLPIDEM TARTRATE
     Indication: SLEEP DISORDER
     Dosage: UNK (FOR SLEEP ONE OR TWO)
  2. KLONOPIN [Concomitant]
     Active Substance: CLONAZEPAM
     Indication: AGGRESSION
     Dosage: 2 DF, UNK
  3. LYRICA [Suspect]
     Active Substance: PREGABALIN
     Indication: PAIN
     Dosage: 75 MG, UNK
  4. FLEXERIL [Concomitant]
     Active Substance: CYCLOBENZAPRINE HYDROCHLORIDE
     Indication: GAIT DISTURBANCE
     Dosage: UNK
  5. LYRICA [Suspect]
     Active Substance: PREGABALIN
     Dosage: 100 MG, 3X/DAY
  6. FENTANYL. [Concomitant]
     Active Substance: FENTANYL
     Dosage: 100 MG, GOES FOR 72 HOURS WHICH IS THREE DAYS
  7. OXYCODONE [Concomitant]
     Active Substance: OXYCODONE
     Indication: PAIN
     Dosage: 4 DF, 4X/DAY

REACTIONS (5)
  - Drug ineffective [Unknown]
  - Arthralgia [Recovering/Resolving]
  - Headache [Unknown]
  - Chest pain [Unknown]
  - Peripheral swelling [Not Recovered/Not Resolved]
